FAERS Safety Report 7653805-8 (Version None)
Quarter: 2011Q3

REPORT INFORMATION
  Report Type: 
  Country: None (occurrence: None)
  Receive Date: 20110803
  Receipt Date: 20110727
  Transmission Date: 20111222
  Serious: Yes (Death)
  Sender: FDA-Public Use
  Company Number: RU-GLAXOSMITHKLINE-Z0004171A

PATIENT
  Sex: Female
  Weight: 54 kg

DRUGS (1)
  1. PAZOPANIB [Suspect]
     Indication: INFLAMMATORY CARCINOMA OF THE BREAST
     Dosage: 800MG PER DAY
     Route: 048
     Dates: start: 20100128

REACTIONS (3)
  - PULMONARY OEDEMA [None]
  - CARDIOPULMONARY FAILURE [None]
  - PNEUMONIA [None]
